FAERS Safety Report 4967837-1 (Version None)
Quarter: 2006Q2

REPORT INFORMATION
  Report Type: 
  Country: None (occurrence: None)
  Receive Date: 20060410
  Receipt Date: 20060314
  Transmission Date: 20061013
  Serious: Yes (Hospitalization)
  Sender: FDA-Public Use
  Company Number: CA-NOVOPROD-251583

PATIENT
  Age: 70 Year
  Sex: Male
  Weight: 77 kg

DRUGS (14)
  1. LEVEMIR [Suspect]
     Indication: INSULIN-REQUIRING TYPE II DIABETES MELLITUS
     Dosage: 14 IU, QD
     Dates: start: 20060125
  2. LEVEMIR [Suspect]
     Dosage: UNK, BID
  3. GLYBURIDE [Concomitant]
     Indication: DRUG USE FOR UNKNOWN INDICATION
  4. DIGOXIN [Concomitant]
     Dosage: .125 UNK, QD
  5. LASIX [Concomitant]
     Dosage: 40 MG, QD
  6. NITRO-SPRAY [Concomitant]
  7. SOTALOL HCL [Concomitant]
     Dosage: 80 MG, BID
  8. ZESTRIL [Concomitant]
     Dosage: 10 MG, QD
  9. EZETIMIBE [Concomitant]
     Dosage: 10 MG, QD
  10. SIMVASTATIN [Concomitant]
     Dosage: 80 MG, QD
  11. WARFARIN [Concomitant]
     Dosage: 2 MG, QD
  12. FLOMAX [Concomitant]
     Dosage: .4 UNK, UNK
  13. FOLIC ACID [Concomitant]
     Dosage: 5 MG, QD
  14. ZOPICLONE [Concomitant]
     Dosage: 75 MG, AT BEDTIME

REACTIONS (5)
  - ABDOMINAL PAIN [None]
  - BACTERAEMIA [None]
  - BACTERIA BLOOD IDENTIFIED [None]
  - DYSPNOEA [None]
  - WEIGHT DECREASED [None]
